FAERS Safety Report 21454753 (Version 1)
Quarter: 2022Q4

REPORT INFORMATION
  Report Type: Spontaneous
  Country: CN (occurrence: CN)
  Receive Date: 20221014
  Receipt Date: 20221014
  Transmission Date: 20230113
  Serious: Yes (Hospitalization, Other)
  Sender: FDA-Public Use
  Company Number: CN-BRISTOL-MYERS SQUIBB COMPANY-2022-119478

PATIENT
  Age: 58 Year
  Sex: Male
  Weight: 65 kg

DRUGS (4)
  1. CARBOPLATIN [Suspect]
     Active Substance: CARBOPLATIN
     Indication: Oesophageal squamous cell carcinoma
     Dosage: AUC 5
     Route: 065
     Dates: start: 20220423, end: 20220514
  2. PACLITAXEL [Suspect]
     Active Substance: PACLITAXEL
     Indication: Oesophageal squamous cell carcinoma
     Dosage: D1
     Route: 042
     Dates: start: 20220423, end: 20220514
  3. APATINIB [Suspect]
     Active Substance: APATINIB
     Indication: Oesophageal squamous cell carcinoma
     Route: 048
     Dates: start: 20220423, end: 20220514
  4. CAMRELIZUMAB [Suspect]
     Active Substance: CAMRELIZUMAB
     Indication: Oesophageal squamous cell carcinoma
     Dosage: D1
     Route: 042
     Dates: start: 20220423, end: 20220514

REACTIONS (2)
  - Immune-mediated hepatitis [Recovered/Resolved]
  - Off label use [Unknown]

NARRATIVE: CASE EVENT DATE: 20220602
